FAERS Safety Report 19172099 (Version 1)
Quarter: 2021Q2

REPORT INFORMATION
  Report Type: Spontaneous
  Country: NL (occurrence: NL)
  Receive Date: 20210423
  Receipt Date: 20210423
  Transmission Date: 20210717
  Serious: Yes (Other)
  Sender: FDA-Public Use
  Company Number: NL-TEVA-2021-NL-1903024

PATIENT
  Age: 34 Year
  Sex: Female
  Weight: 87 kg

DRUGS (1)
  1. SUMATRSUMATRIPTAN DISPERTABLET 50MG / BRAND NAME NOT SPECIFIEDIPTAN [Suspect]
     Active Substance: SUMATRIPTAN
     Indication: MIGRAINE
     Dosage: 50 MILLIGRAM DAILY; 50 MG PER DAY PER ATTACK (2X ATTACK OF 3 DAYS PER MONTH)
     Dates: start: 2015

REACTIONS (2)
  - Bradycardia [Recovered/Resolved]
  - Palpitations [Recovered/Resolved]

NARRATIVE: CASE EVENT DATE: 20210329
